FAERS Safety Report 10367590 (Version 1)
Quarter: 2014Q3

REPORT INFORMATION
  Report Type: Spontaneous
  Country: US (occurrence: None)
  Receive Date: 20140806
  Receipt Date: 20140806
  Transmission Date: 20150326
  Serious: Yes (Other)
  Sender: FDA-Public Use
  Company Number: None

PATIENT
  Age: 61 Year
  Sex: Female
  Weight: 72.58 kg

DRUGS (1)
  1. METROPROLOL [Suspect]
     Active Substance: METOPROLOL
     Indication: HYPERTENSION
     Dosage: 1.5 PILLS, ONCE DAILY, TAKEN BY MOUTH
     Route: 048
     Dates: start: 20130411, end: 20130417

REACTIONS (4)
  - Vision blurred [None]
  - Blood pressure increased [None]
  - Product substitution issue [None]
  - Palpitations [None]

NARRATIVE: CASE EVENT DATE: 20130410
